FAERS Safety Report 14505224 (Version 2)
Quarter: 2018Q1

REPORT INFORMATION
  Report Type: Report from Study
  Country: NL (occurrence: NL)
  Receive Date: 20180208
  Receipt Date: 20180223
  Transmission Date: 20180509
  Serious: Yes (Death)
  Sender: FDA-Public Use
  Company Number: PHHY2018NL021476

PATIENT
  Sex: Male

DRUGS (2)
  1. ACLASTA [Suspect]
     Active Substance: ZOLEDRONIC ACID
     Dosage: 1 DF, Q12MO (1 X 52 WEEKS)
     Route: 042
     Dates: start: 20160205, end: 20160205
  2. ACLASTA [Suspect]
     Active Substance: ZOLEDRONIC ACID
     Indication: OSTEOPOROSIS
     Dosage: 1 DF, Q12MO (1 X 52 WEEKS)
     Route: 042
     Dates: start: 20150204

REACTIONS (3)
  - Decubitus ulcer [Fatal]
  - Rheumatoid arthritis [Fatal]
  - Chronic obstructive pulmonary disease [Fatal]
